FAERS Safety Report 24163589 (Version 4)
Quarter: 2025Q3

REPORT INFORMATION
  Report Type: Spontaneous
  Country: US (occurrence: US)
  Receive Date: 20240801
  Receipt Date: 20250905
  Transmission Date: 20251021
  Serious: Yes (Hospitalization)
  Sender: DOMPE FARMACEUTICI
  Company Number: US-FARMAPROD-202406-2334

PATIENT
  Sex: Female

DRUGS (19)
  1. OXERVATE [Suspect]
     Active Substance: CENEGERMIN-BKBJ
     Indication: Neurotrophic keratopathy
     Route: 047
     Dates: start: 20240606
  2. OXERVATE [Suspect]
     Active Substance: CENEGERMIN-BKBJ
  3. OXERVATE [Suspect]
     Active Substance: CENEGERMIN-BKBJ
  4. OXERVATE [Suspect]
     Active Substance: CENEGERMIN-BKBJ
     Route: 047
     Dates: start: 20250212
  5. PREDNISOLONE ACETATE [Concomitant]
     Active Substance: PREDNISOLONE ACETATE
  6. SYSTANE GEL [Concomitant]
  7. ASPIRIN [Concomitant]
     Active Substance: ASPIRIN
  8. TYLENOL [Concomitant]
     Active Substance: ACETAMINOPHEN
  9. VITAMIN B12 [Concomitant]
     Active Substance: CYANOCOBALAMIN
  10. TRAMADOL HCL [Concomitant]
     Active Substance: TRAMADOL HYDROCHLORIDE
  11. LISINOPRIL [Concomitant]
     Active Substance: LISINOPRIL
  12. VITAMIN D2 [Concomitant]
     Active Substance: ERGOCALCIFEROL
  13. OMEPRAZOLE [Concomitant]
     Active Substance: OMEPRAZOLE
  14. DICLOFENAC SODIUM [Concomitant]
     Active Substance: DICLOFENAC SODIUM
  15. CARVEDILOL [Concomitant]
     Active Substance: CARVEDILOL
  16. ATORVASTATIN CALCIUM [Concomitant]
     Active Substance: ATORVASTATIN CALCIUM
  17. GABAPENTIN [Concomitant]
     Active Substance: GABAPENTIN
  18. COSENTYX UNOREADY [Concomitant]
  19. CEPHALEXIN [Concomitant]
     Active Substance: CEPHALEXIN

REACTIONS (8)
  - Shoulder arthroplasty [Recovered/Resolved]
  - Arthralgia [Unknown]
  - Product dose omission issue [Not Recovered/Not Resolved]
  - Product use complaint [Unknown]
  - Product administration error [Unknown]
  - COVID-19 [Unknown]
  - Periorbital pain [Not Recovered/Not Resolved]
  - Eye pain [Not Recovered/Not Resolved]
